FAERS Safety Report 5303717-X (Version None)
Quarter: 2007Q2

REPORT INFORMATION
  Report Type: 
  Country: None (occurrence: None)
  Receive Date: 20070420
  Receipt Date: 20070409
  Transmission Date: 20071010
  Serious: Yes (Hospitalization, Disabling)
  Sender: FDA-Public Use
  Company Number: CG-MERCK-0704USA01399

PATIENT
  Sex: Male
  Weight: 161 kg

DRUGS (1)
  1. MECTIZAN [Suspect]
     Route: 065
     Dates: start: 20070120

REACTIONS (7)
  - AGITATION [None]
  - COUGH [None]
  - DISORIENTATION [None]
  - DYSARTHRIA [None]
  - HAEMOPTYSIS [None]
  - HEMIPLEGIA [None]
  - TREMOR [None]
